FAERS Safety Report 7359283-0 (Version None)
Quarter: 2011Q1

REPORT INFORMATION
  Report Type: 
  Country: None (occurrence: None)
  Receive Date: 20110317
  Receipt Date: 20090904
  Transmission Date: 20110831
  Serious: No
  Sender: FDA-Public Use
  Company Number: US-PFIZER INC-2009255394

PATIENT
  Sex: Female
  Weight: 72.574 kg

DRUGS (9)
  1. ACETYLSALICYLIC ACID [Concomitant]
  2. NORVASC [Suspect]
     Indication: HYPERTENSION
     Dosage: 5 MG, 1X/DAY
     Route: 048
     Dates: start: 20020101, end: 20090801
  3. LIPITOR [Concomitant]
     Indication: BLOOD CHOLESTEROL INCREASED
  4. ZYRTEC [Concomitant]
     Indication: SINUS DISORDER
  5. PREVACID [Concomitant]
     Indication: GASTROOESOPHAGEAL REFLUX DISEASE
  6. OSTEO BI-FLEX [Concomitant]
     Indication: INTERVERTEBRAL DISC PROTRUSION
  7. RELAFEN [Concomitant]
     Indication: ARTHRITIS
  8. PULMICORT [Concomitant]
     Indication: ASTHMA
  9. CALCIUM [Concomitant]

REACTIONS (3)
  - GENERALISED OEDEMA [None]
  - OEDEMA PERIPHERAL [None]
  - BLOOD PRESSURE INADEQUATELY CONTROLLED [None]
